FAERS Safety Report 17455009 (Version 1)
Quarter: 2020Q1

REPORT INFORMATION
  Report Type: Spontaneous
  Country: US (occurrence: US)
  Receive Date: 20200225
  Receipt Date: 20200225
  Transmission Date: 20200409
  Serious: No
  Sender: FDA-Public Use
  Company Number: US-CURIUM-200900321

PATIENT
  Age: 53 Year
  Sex: Female

DRUGS (2)
  1. SODIUM PERTECHNETATE TC 99M [Suspect]
     Active Substance: TECHNETIUM TC-99M SODIUM PERTECHNETATE
     Indication: BONE SCAN
     Dosage: 20.1 MCI, UNK
     Dates: start: 20090817, end: 20090817
  2. TECHNESCAN HDP [Suspect]
     Active Substance: TECHNETIUM TC-99M OXIDRONATE
     Indication: BONE SCAN
     Dosage: UNK
     Dates: start: 20090817, end: 20090817

REACTIONS (2)
  - Product dispensing error [Recovered/Resolved]
  - Product administration error [Recovered/Resolved]

NARRATIVE: CASE EVENT DATE: 20090817
